FAERS Safety Report 25275382 (Version 1)
Quarter: 2025Q2

REPORT INFORMATION
  Report Type: Other
  Country: US (occurrence: US)
  Receive Date: 20250506
  Receipt Date: 20250506
  Transmission Date: 20250717
  Serious: Yes (Death, Other)
  Sender: HLS THERAPEUTICS
  Company Number: US-HLS-202500162

PATIENT
  Age: 68 Year
  Sex: Male

DRUGS (1)
  1. CLOZAPINE [Suspect]
     Active Substance: CLOZAPINE
     Indication: Parkinson^s disease psychosis
     Dosage: STARTED WITH 50MG AND MAXIMUM DOSE 100 MG
     Route: 065

REACTIONS (4)
  - Death [Fatal]
  - Drooling [Fatal]
  - Off label use [Unknown]
  - Sedation [Fatal]
